FAERS Safety Report 18901855 (Version 1)
Quarter: 2021Q1

REPORT INFORMATION
  Report Type: Other
  Country: US (occurrence: US)
  Receive Date: 20210217
  Receipt Date: 20210217
  Transmission Date: 20210420
  Serious: Yes (Hospitalization, Other)
  Sender: FDA-Public Use
  Company Number: US-ROCHE-2162384

PATIENT
  Age: 37 Year
  Sex: Female
  Weight: 74.91 kg

DRUGS (6)
  1. OCREVUS [Suspect]
     Active Substance: OCRELIZUMAB
     Route: 042
  2. BENADRYL [Concomitant]
     Active Substance: DIPHENHYDRAMINE HYDROCHLORIDE
     Indication: PREMEDICATION
     Dosage: TAKE 3 TIMES DURING OCREVUS INFUSION
     Route: 065
     Dates: start: 201707
  3. OCREVUS [Suspect]
     Active Substance: OCRELIZUMAB
     Indication: RELAPSING MULTIPLE SCLEROSIS
     Dosage: ONGOING: YES
     Route: 065
     Dates: start: 20170629
  4. OCREVUS [Suspect]
     Active Substance: OCRELIZUMAB
     Dosage: DATE OF TREATMENT: 13/JUL/2017, 27/JUN/2017, 29/JUN/2017, 05/JAN/2018, 15/JAN/2018 (600 MG), 16/JUL/
     Route: 042
     Dates: start: 201707
  5. OCREVUS [Suspect]
     Active Substance: OCRELIZUMAB
     Indication: RELAPSING-REMITTING MULTIPLE SCLEROSIS
     Route: 065
     Dates: start: 20170713
  6. OCREVUS [Suspect]
     Active Substance: OCRELIZUMAB
     Route: 065
     Dates: start: 20180115

REACTIONS (9)
  - Localised infection [Recovered/Resolved]
  - Anaphylactic reaction [Recovered/Resolved]
  - Fungal infection [Not Recovered/Not Resolved]
  - Pharyngeal swelling [Not Recovered/Not Resolved]
  - Blood immunoglobulin G decreased [Not Recovered/Not Resolved]
  - Nausea [Not Recovered/Not Resolved]
  - Cyst [Not Recovered/Not Resolved]
  - Pruritus [Not Recovered/Not Resolved]
  - Multiple sclerosis relapse [Not Recovered/Not Resolved]

NARRATIVE: CASE EVENT DATE: 20170629
